FAERS Safety Report 17111520 (Version 2)
Quarter: 2019Q4

REPORT INFORMATION
  Report Type: Report from Study
  Country: CO (occurrence: CO)
  Receive Date: 20191204
  Receipt Date: 20191210
  Transmission Date: 20200122
  Serious: Yes (Life-Threatening, Hospitalization, Other)
  Sender: FDA-Public Use
  Company Number: CO-BRISTOL-MYERS SQUIBB COMPANY-BMS-2019-088165

PATIENT
  Age: 69 Year
  Sex: Female

DRUGS (1)
  1. NIVOLUMAB [Suspect]
     Active Substance: NIVOLUMAB
     Indication: MALIGNANT MELANOMA
     Dosage: 200 MILLIGRAM, Q2WK
     Route: 042
     Dates: start: 20190821, end: 20191113

REACTIONS (13)
  - Asthenia [Recovering/Resolving]
  - Decreased immune responsiveness [Unknown]
  - Dehydration [Recovering/Resolving]
  - Cachexia [Recovering/Resolving]
  - Psychiatric symptom [Recovering/Resolving]
  - Weight decreased [Recovering/Resolving]
  - Malnutrition [Recovering/Resolving]
  - Depressed mood [Recovering/Resolving]
  - Hypophagia [Recovering/Resolving]
  - Decreased appetite [Recovering/Resolving]
  - Musculoskeletal pain [Not Recovered/Not Resolved]
  - Oedema [Unknown]
  - Nausea [Recovering/Resolving]

NARRATIVE: CASE EVENT DATE: 20190905
